FAERS Safety Report 8221436-7 (Version None)
Quarter: 2012Q1

REPORT INFORMATION
  Report Type: 
  Country: None (occurrence: None)
  Receive Date: 20120316
  Receipt Date: 20120229
  Transmission Date: 20120608
  Serious: Yes (Other)
  Sender: FDA-Public Use
  Company Number: JPI-P-020071

PATIENT
  Age: 55 Year
  Sex: Male
  Weight: 72.5755 kg

DRUGS (2)
  1. XYREM [Suspect]
     Indication: APNOEA
     Dosage: 6 GM (3 GM, 2 IN 1 D), ORAL, ORAL, 8 GM (4 GM, 2 IN 1 D), ORAL, 4.5 GM (4.5 GM, 1 IN 1 D), ORAL
     Route: 048
     Dates: start: 20090515
  2. XYREM [Suspect]
     Indication: APNOEA
     Dosage: 6 GM (3 GM, 2 IN 1 D), ORAL, ORAL, 8 GM (4 GM, 2 IN 1 D), ORAL, 4.5 GM (4.5 GM, 1 IN 1 D), ORAL
     Route: 048
     Dates: start: 20101115

REACTIONS (2)
  - SPINAL COLUMN STENOSIS [None]
  - PROCEDURAL PAIN [None]
